FAERS Safety Report 5079180-3 (Version None)
Quarter: 2006Q3

REPORT INFORMATION
  Report Type: 
  Country: None (occurrence: None)
  Receive Date: 20060814
  Receipt Date: 20060803
  Transmission Date: 20061208
  Serious: Yes (Hospitalization)
  Sender: FDA-Public Use
  Company Number: FR-GLAXOSMITHKLINE-B0433721A

PATIENT
  Age: 29 Year
  Sex: Female

DRUGS (3)
  1. DEROXAT [Suspect]
     Indication: DYSTHYMIC DISORDER
     Dosage: 10MG PER DAY
     Route: 048
     Dates: start: 20060710, end: 20060715
  2. SEGLOR [Suspect]
     Indication: HEADACHE
     Dosage: 2CAP PER DAY
     Route: 048
     Dates: start: 20060714, end: 20060715
  3. COLCHICINE HOUDE [Concomitant]
     Dosage: 2MG PER DAY
     Route: 048
     Dates: start: 20060703

REACTIONS (9)
  - ABDOMINAL PAIN [None]
  - ABDOMINAL PAIN UPPER [None]
  - ANOREXIA [None]
  - DRUG INTERACTION [None]
  - HYPERHIDROSIS [None]
  - MALAISE [None]
  - METABOLIC ACIDOSIS [None]
  - NAUSEA [None]
  - VOMITING [None]
